FAERS Safety Report 11669166 (Version 1)
Quarter: 2015Q4

REPORT INFORMATION
  Report Type: Spontaneous
  Country: US (occurrence: US)
  Receive Date: 20151027
  Receipt Date: 20151027
  Transmission Date: 20160304
  Serious: No
  Sender: FDA-Public Use
  Company Number: US-ELI_LILLY_AND_COMPANY-US201004001718

PATIENT
  Age: 74 Year
  Sex: Male

DRUGS (2)
  1. FORTEO [Suspect]
     Active Substance: TERIPARATIDE
     Indication: OSTEOPOROSIS
     Dosage: 20 UG, DAILY (1/D)
     Dates: start: 2009, end: 201003
  2. FORTEO [Suspect]
     Active Substance: TERIPARATIDE
     Dosage: 20 UG, DAILY (1/D)
     Dates: start: 201003

REACTIONS (7)
  - Abdominal pain upper [Unknown]
  - Insomnia [Recovered/Resolved]
  - Umbilical hernia [Unknown]
  - Burning sensation [Unknown]
  - Arthralgia [Unknown]
  - Dysstasia [Unknown]
  - Constipation [Unknown]

NARRATIVE: CASE EVENT DATE: 201003
